FAERS Safety Report 5366616-3 (Version None)
Quarter: 2007Q2

REPORT INFORMATION
  Report Type: 
  Country: None (occurrence: None)
  Receive Date: 20070619
  Receipt Date: 20070613
  Transmission Date: 20071010
  Serious: Yes (Hospitalization)
  Sender: FDA-Public Use
  Company Number: 1-14999513

PATIENT
  Sex: Male

DRUGS (1)
  1. DOXYCYCLINE HYCLATE [Suspect]
     Indication: TOOTH INFECTION
     Dosage: 100MG TWICE DAILY, ORAL
     Route: 048

REACTIONS (2)
  - ORAL INTAKE REDUCED [None]
  - STEVENS-JOHNSON SYNDROME [None]
